FAERS Safety Report 8507981 (Version 2)
Quarter: 2013Q1

REPORT INFORMATION
  Report Type: Spontaneous
  Country: US (occurrence: US)
  Receive Date: 20120412
  Receipt Date: 20130320
  Transmission Date: 20140127
  Serious: No
  Sender: FDA-Public Use
  Company Number: US-ASTRAZENECA-2011SE77361

PATIENT
  Age: 73 Year
  Sex: Female

DRUGS (3)
  1. NEXIUM [Suspect]
     Indication: HIATUS HERNIA
     Route: 048
  2. PRILOSEC [Suspect]
     Route: 048
  3. OTHER MEDICATION [Suspect]
     Route: 065

REACTIONS (10)
  - Gastric disorder [Unknown]
  - Dyspepsia [Unknown]
  - Choking [Unknown]
  - Throat irritation [Unknown]
  - Abdominal pain upper [Unknown]
  - Road traffic accident [Unknown]
  - Vomiting [Unknown]
  - Malaise [Unknown]
  - Drug dose omission [Unknown]
  - Intentional drug misuse [Unknown]
